FAERS Safety Report 12920136 (Version 1)
Quarter: 2016Q4

REPORT INFORMATION
  Report Type: Spontaneous
  Country: US (occurrence: US)
  Receive Date: 20161104
  Receipt Date: 20161104
  Transmission Date: 20170207
  Serious: Yes (Disabling)
  Sender: FDA-Public Use
  Company Number: None

PATIENT
  Age: 73 Year
  Sex: Female
  Weight: 54 kg

DRUGS (4)
  1. TAMOXIFEN [Concomitant]
     Active Substance: TAMOXIFEN
  2. HYDROXYZINE [Concomitant]
     Active Substance: HYDROXYZINE\HYDROXYZINE HYDROCHLORIDE
  3. ARIMIDEX [Suspect]
     Active Substance: ANASTROZOLE
     Indication: BREAST CANCER
     Dosage: QUANTITY:1 CAPSULE(S); DAILY; ORAL?
     Route: 048
     Dates: start: 20160921, end: 20160926
  4. PREDNISONE. [Concomitant]
     Active Substance: PREDNISONE

REACTIONS (8)
  - Weight increased [None]
  - Pruritus generalised [None]
  - Skin disorder [None]
  - Feeling abnormal [None]
  - Skin discolouration [None]
  - Blister [None]
  - Swelling face [None]
  - Swelling [None]

NARRATIVE: CASE EVENT DATE: 20160921
